FAERS Safety Report 5391831-2 (Version None)
Quarter: 2007Q3

REPORT INFORMATION
  Report Type: 
  Country: None (occurrence: None)
  Receive Date: 20070718
  Receipt Date: 20070706
  Transmission Date: 20080115
  Serious: Yes (Congenital Anomaly)
  Sender: FDA-Public Use
  Company Number: S07-USA-02894-02

PATIENT

DRUGS (2)
  1. LEXAPRO [Suspect]
     Dosage: 20 MG QD TRANSPLACENTAL
     Route: 064
     Dates: start: 20061101
  2. PRENATAL VITAMINS [Concomitant]

REACTIONS (5)
  - BILIARY TRACT DISORDER [None]
  - CONGENITAL ANOMALY [None]
  - CYST [None]
  - DRUG EXPOSURE DURING PREGNANCY [None]
  - FOETAL DISORDER [None]
